FAERS Safety Report 5392006-3 (Version None)
Quarter: 2007Q3

REPORT INFORMATION
  Report Type: 
  Country: None (occurrence: None)
  Receive Date: 20070720
  Receipt Date: 20070713
  Transmission Date: 20080115
  Serious: Yes (Other)
  Sender: FDA-Public Use
  Company Number: US-JNJFOC-20070703567

PATIENT
  Sex: Female
  Weight: 59.88 kg

DRUGS (2)
  1. ORTHO TRI-CYCLEN [Suspect]
     Indication: MENSTRUATION IRREGULAR
     Route: 048
  2. ORTHO TRI-CYCLEN [Suspect]
     Indication: CONTRACEPTION
     Route: 048

REACTIONS (1)
  - ASTHMA [None]
